FAERS Safety Report 22249170 (Version 1)
Quarter: 2023Q2

REPORT INFORMATION
  Report Type: Spontaneous
  Country: US (occurrence: None)
  Receive Date: 20230421
  Receipt Date: 20230421
  Transmission Date: 20230721
  Serious: No
  Sender: FDA-Public Use
  Company Number: None

PATIENT
  Sex: Male

DRUGS (1)
  1. HUMIRA [Suspect]
     Active Substance: ADALIMUMAB
     Indication: Psoriasis
     Dosage: INJECT 80MG PEN UNDER THE SKIN ON DAY 1, THEN 40MG PEN ON DAY 8, THEN 40MG EVERY 14 DAYS THEREAFTER.
     Route: 058
     Dates: start: 202303

REACTIONS (3)
  - Rash [None]
  - Paraesthesia [None]
  - Feeling abnormal [None]
